FAERS Safety Report 19791036 (Version 2)
Quarter: 2021Q3

REPORT INFORMATION
  Report Type: Spontaneous
  Country: US (occurrence: US)
  Receive Date: 20210906
  Receipt Date: 20210919
  Transmission Date: 20211014
  Serious: No
  Sender: FDA-Public Use
  Company Number: US-SA-2021SA289862

PATIENT
  Sex: Female

DRUGS (4)
  1. DUPIXENT [Suspect]
     Active Substance: DUPILUMAB
     Indication: DERMATITIS ATOPIC
     Dosage: 300 MG, QOW
     Route: 058
     Dates: start: 202010
  2. VITAMINS NOS [Concomitant]
     Active Substance: VITAMINS
  3. B12 ACTIVE [Concomitant]
  4. SLYND [Concomitant]
     Active Substance: DROSPIRENONE

REACTIONS (2)
  - Injection site pain [Unknown]
  - Pruritus [Unknown]
